FAERS Safety Report 9892595 (Version 1)
Quarter: 2014Q1

REPORT INFORMATION
  Report Type: Spontaneous
  Country: US (occurrence: US)
  Receive Date: 20140212
  Receipt Date: 20140212
  Transmission Date: 20141002
  Serious: Yes (Other)
  Sender: FDA-Public Use
  Company Number: PHHY2014US016814

PATIENT
  Age: 55 Year
  Sex: Male

DRUGS (2)
  1. CICLOSPORIN [Suspect]
     Indication: PROPHYLAXIS AGAINST GRAFT VERSUS HOST DISEASE
  2. MYCOPHENOLATE [Suspect]
     Indication: PROPHYLAXIS AGAINST GRAFT VERSUS HOST DISEASE

REACTIONS (9)
  - Acute graft versus host disease in intestine [Recovered/Resolved]
  - Guillain-Barre syndrome [Unknown]
  - Paraesthesia [Recovered/Resolved]
  - Diplegia [Recovered/Resolved]
  - Demyelinating polyneuropathy [Recovered/Resolved]
  - Muscular weakness [Recovered/Resolved]
  - Areflexia [Recovered/Resolved]
  - Rash [Unknown]
  - Rash maculo-papular [Unknown]
